FAERS Safety Report 4465929-7 (Version None)
Quarter: 2004Q3

REPORT INFORMATION
  Report Type: 
  Country: None (occurrence: None)
  Receive Date: 20040930
  Receipt Date: 20040930
  Transmission Date: 20050211
  Serious: Yes (Hospitalization)
  Sender: FDA-Public Use
  Company Number: None

PATIENT
  Age: 63 Year
  Sex: Female
  Weight: 46.7205 kg

DRUGS (4)
  1. DARBEPOETIN ALFA  4.5 MCG/ KG  AMGEN [Suspect]
     Indication: CERVIX CARCINOMA
     Dosage: 4.5 MCG/KG WEEKLY SUBCUTANEOUS
     Route: 058
     Dates: start: 20030529, end: 20030626
  2. PLACEBO [Suspect]
  3. RADIATION THERAPY [Concomitant]
  4. CARBOPLATIN [Concomitant]

REACTIONS (1)
  - GASTROENTERITIS RADIATION [None]
